FAERS Safety Report 23611169 (Version 1)
Quarter: 2024Q1

REPORT INFORMATION
  Report Type: Spontaneous
  Country: IT (occurrence: IT)
  Receive Date: 20240308
  Receipt Date: 20240308
  Transmission Date: 20240409
  Serious: Yes (Other)
  Sender: FDA-Public Use
  Company Number: None

PATIENT
  Age: 78 Year
  Sex: Male
  Weight: 64 kg

DRUGS (4)
  1. AFLIBERCEPT [Suspect]
     Active Substance: AFLIBERCEPT
     Indication: Colon cancer stage IV
     Dosage: 250 MG, QOW (START OF THERAPY ON 15/11/2023 - THERAPY EVERY 14 DAYS - 5TH CYCLE)
     Route: 042
     Dates: start: 20240111, end: 20240111
  2. FLUOROURACIL [Suspect]
     Active Substance: FLUOROURACIL
     Indication: Colon cancer stage IV
     Dosage: 500 MG, QOW (START OF THERAPY ON 15/11/2023 - THERAPY EVERY 14 DAYS - 5TH CYCLE - BOLUS INFUSION.DRU
     Route: 042
     Dates: start: 20240111, end: 20240111
  3. IRINOTECAN [Suspect]
     Active Substance: IRINOTECAN
     Indication: Colon cancer stage IV
     Dosage: 240 MG, QOW (START OF THERAPY ON 15/11/2023 - THERAPY EVERY 14 DAYS - 5TH CYCLE)
     Route: 042
     Dates: start: 20240111, end: 20240111
  4. ACIDOKYL [Concomitant]
     Dosage: 500 MG

REACTIONS (1)
  - Azotaemia [Recovering/Resolving]

NARRATIVE: CASE EVENT DATE: 20240122
